FAERS Safety Report 13795473 (Version 4)
Quarter: 2017Q3

REPORT INFORMATION
  Report Type: Spontaneous
  Country: US (occurrence: US)
  Receive Date: 20170726
  Receipt Date: 20170919
  Transmission Date: 20171127
  Serious: Yes (Disabling, Other)
  Sender: FDA-Public Use
  Company Number: US-STRIDES ARCOLAB LIMITED-2017SP011035

PATIENT

DRUGS (5)
  1. LIDOCAINE. [Concomitant]
     Active Substance: LIDOCAINE
     Indication: PRODUCT USED FOR UNKNOWN INDICATION
     Dosage: UNK
  2. AMVISC [Concomitant]
     Indication: PRODUCT USED FOR UNKNOWN INDICATION
     Dosage: UNK, INTRACAMERAL ROUTE
     Route: 031
  3. VISCOAT                            /00937001/ [Concomitant]
     Indication: PRODUCT USED FOR UNKNOWN INDICATION
     Dosage: UNK
     Route: 065
  4. VANCOMYCIN [Suspect]
     Active Substance: VANCOMYCIN
     Indication: PRODUCT USED FOR UNKNOWN INDICATION
     Dosage: 1MG/0.1ML, INTRACAMERAL ROUTE
     Route: 031
  5. VANCOMYCIN [Suspect]
     Active Substance: VANCOMYCIN
     Dosage: 1MG/0.1ML, INTRACAMERAL ROUTE
     Route: 031

REACTIONS (4)
  - Visual impairment [Recovered/Resolved]
  - Retinal vasculitis [Recovered/Resolved]
  - Iridocyclitis [Recovered/Resolved]
  - Autoimmune uveitis [Recovered/Resolved]
